FAERS Safety Report 4335049-0 (Version None)
Quarter: 2004Q2

REPORT INFORMATION
  Report Type: 
  Country: None (occurrence: None)
  Receive Date: 20040408
  Receipt Date: 20040325
  Transmission Date: 20050107
  Serious: Yes (Life-Threatening, Hospitalization, Other)
  Sender: FDA-Public Use
  Company Number: FR-GLAXOSMITHKLINE-B0327925A

PATIENT
  Age: 46 Year
  Sex: Female

DRUGS (3)
  1. DEROXAT [Suspect]
     Indication: DEPRESSION
     Dosage: 20MG PER DAY
     Route: 048
  2. IMOVANE [Concomitant]
  3. XANAX [Concomitant]

REACTIONS (2)
  - ENCEPHALOPATHY [None]
  - HEPATITIS FULMINANT [None]
